FAERS Safety Report 25839015 (Version 1)
Quarter: 2025Q3

REPORT INFORMATION
  Report Type: Spontaneous
  Country: IN (occurrence: IN)
  Receive Date: 20250924
  Receipt Date: 20250924
  Transmission Date: 20251021
  Serious: Yes (Hospitalization, Other)
  Sender: NOVITIUM PHARMA
  Company Number: IN-NOVITIUMPHARMA-2025INNVP02371

PATIENT
  Age: 26 Year
  Sex: Male

DRUGS (1)
  1. SILDENAFIL CITRATE [Suspect]
     Active Substance: SILDENAFIL CITRATE
     Indication: Product used for unknown indication

REACTIONS (2)
  - Acute kidney injury [Recovering/Resolving]
  - Autoimmune haemolytic anaemia [Unknown]
